FAERS Safety Report 22397195 (Version 2)
Quarter: 2023Q2

REPORT INFORMATION
  Report Type: Report from Study
  Country: US (occurrence: US)
  Receive Date: 20230602
  Receipt Date: 20230605
  Transmission Date: 20230721
  Serious: Yes (Death)
  Sender: FDA-Public Use
  Company Number: US-ABBVIE-5187943

PATIENT
  Sex: Male

DRUGS (3)
  1. VENCLEXTA [Suspect]
     Active Substance: VENETOCLAX
     Indication: Acute myelomonocytic leukaemia
     Dosage: 4 TABLETS ONCE DAILY WITH FOOD AND FULL GLASS OF WATER?FORM STRENGTH: 100 MILLIGRAM
     Route: 048
  2. VENCLEXTA [Suspect]
     Active Substance: VENETOCLAX
     Indication: Acute myelomonocytic leukaemia
     Dosage: DAY 2?FORM STRENGTH: 100 MG
     Route: 048
  3. VENCLEXTA [Suspect]
     Active Substance: VENETOCLAX
     Indication: Acute myelomonocytic leukaemia
     Dosage: DAY 1?FORM STRENGTH: 100 MG
     Route: 048

REACTIONS (1)
  - Pleural effusion [Fatal]
